FAERS Safety Report 9134383 (Version 1)
Quarter: 2013Q1

REPORT INFORMATION
  Report Type: Spontaneous
  Country: BR (occurrence: BR)
  Receive Date: 20130304
  Receipt Date: 20130304
  Transmission Date: 20140127
  Serious: Yes (Other)
  Sender: FDA-Public Use
  Company Number: BR-ACCORD-016628

PATIENT
  Age: 49 Year
  Sex: Female
  Weight: 113 kg

DRUGS (5)
  1. PACLITAXEL [Suspect]
     Indication: BREAST CANCER
     Dosage: 1ST CYLE-175MG/M2 ON 30-NOV-2012 AND 2ND CYCLE OF 350 MG (BATCH- N07888) ON 28-DEC-2012
     Route: 042
     Dates: start: 20121130, end: 20121228
  2. DIPHENHYDRAMINE [Concomitant]
     Route: 042
     Dates: start: 20121228, end: 20121228
  3. ONDANSETRON [Concomitant]
     Route: 042
     Dates: start: 20121228, end: 20121228
  4. DEXAMETHASONE [Concomitant]
     Route: 042
     Dates: start: 20121228, end: 20121228
  5. RANITIDINE [Concomitant]
     Route: 042
     Dates: start: 20121228, end: 20121228

REACTIONS (3)
  - Myalgia [Unknown]
  - Hypertension [Recovered/Resolved]
  - Erythema [Recovered/Resolved]
